FAERS Safety Report 11106896 (Version 1)
Quarter: 2015Q2

REPORT INFORMATION
  Report Type: Spontaneous
  Country: US (occurrence: US)
  Receive Date: 20150512
  Receipt Date: 20150512
  Transmission Date: 20150821
  Serious: Yes (Hospitalization, Other)
  Sender: FDA-Public Use
  Company Number: US-PFIZER INC-2015155921

PATIENT
  Age: 49 Year
  Sex: Male
  Weight: 175 kg

DRUGS (14)
  1. MEDROL [Suspect]
     Active Substance: METHYLPREDNISOLONE
  2. VICODIN [Suspect]
     Active Substance: ACETAMINOPHEN\HYDROCODONE BITARTRATE
     Dosage: UNK
  3. REMODULIN [Suspect]
     Active Substance: TREPROSTINIL
     Dosage: 0.016 MG/KG, UNK (0.0165)
     Route: 042
  4. WARFARIN [Concomitant]
     Active Substance: WARFARIN
     Dosage: UNK
  5. TRACLEER [Concomitant]
     Active Substance: BOSENTAN\BOSENTAN MONOHYDRATE
     Dosage: UNK
  6. REMODULIN [Suspect]
     Active Substance: TREPROSTINIL
     Dosage: 0.01 MG/KG, UNK
     Route: 042
     Dates: start: 20140919
  7. REMODULIN [Suspect]
     Active Substance: TREPROSTINIL
     Dosage: 0.03 MG/KG, UNK
     Route: 042
     Dates: start: 20110902
  8. REMODULIN [Suspect]
     Active Substance: TREPROSTINIL
     Dosage: 0.026 MG/KG, UNK
     Route: 042
     Dates: start: 20140917
  9. REMODULIN [Suspect]
     Active Substance: TREPROSTINIL
     Dosage: 0.01 MG/KG, UNK
     Route: 042
     Dates: start: 20140919
  10. REMODULIN [Suspect]
     Active Substance: TREPROSTINIL
     Dosage: 0.026 MG/KG, UNK
     Route: 042
  11. REMODULIN [Suspect]
     Active Substance: TREPROSTINIL
     Dosage: 0.035 MG/KG, UNK
     Dates: start: 20140814
  12. REMODULIN [Suspect]
     Active Substance: TREPROSTINIL
     Indication: PULMONARY HYPERTENSION
     Dosage: 0.022 MG/KG, UNK
     Route: 042
     Dates: start: 20110902
  13. REMODULIN [Suspect]
     Active Substance: TREPROSTINIL
     Dosage: 0.022 MG/KG, UNK
     Route: 042
     Dates: start: 20140812
  14. ADEMPAS [Concomitant]
     Active Substance: RIOCIGUAT
     Dosage: UNK

REACTIONS (23)
  - Gout [Unknown]
  - Cough [Recovering/Resolving]
  - Injection site haemorrhage [Unknown]
  - Head discomfort [Unknown]
  - Catheter site pruritus [Unknown]
  - Rash [Unknown]
  - Fluid retention [Unknown]
  - Dizziness [Unknown]
  - Purulent discharge [Unknown]
  - Pain in extremity [Unknown]
  - Cardiac disorder [Unknown]
  - Nausea [Unknown]
  - Vomiting [Unknown]
  - Nasopharyngitis [Unknown]
  - Diarrhoea [Unknown]
  - Dysgeusia [Unknown]
  - Infusion site reaction [Unknown]
  - Infusion site erythema [Unknown]
  - Oedema peripheral [Unknown]
  - Arthralgia [Unknown]
  - Retching [Unknown]
  - Catheter site discharge [Unknown]
  - Injection site reaction [Unknown]

NARRATIVE: CASE EVENT DATE: 2014
